FAERS Safety Report 13961230 (Version 1)
Quarter: 2017Q3

REPORT INFORMATION
  Report Type: Spontaneous
  Country: US (occurrence: US)
  Receive Date: 20170912
  Receipt Date: 20170912
  Transmission Date: 20171128
  Serious: Yes (Hospitalization, Other)
  Sender: FDA-Public Use
  Company Number: US-TEVA-804603USA

PATIENT
  Age: 42 Year
  Sex: Female

DRUGS (5)
  1. DEXAMFETAMINE [Suspect]
     Active Substance: DEXTROAMPHETAMINE
     Indication: OVERDOSE
     Route: 065
  2. BUSPIRONE [Suspect]
     Active Substance: BUSPIRONE HYDROCHLORIDE
     Indication: OVERDOSE
     Route: 065
  3. ACEPROMAZINE [Suspect]
     Active Substance: ACEPROMAZINE
     Indication: OVERDOSE
     Route: 065
  4. OXYCODONE HYDROCHLORIDE. [Suspect]
     Active Substance: OXYCODONE HYDROCHLORIDE
     Indication: OVERDOSE
     Route: 065
  5. DICYCLOMINE [Suspect]
     Active Substance: DICYCLOMINE HYDROCHLORIDE
     Indication: OVERDOSE
     Route: 065

REACTIONS (9)
  - Hypothermia [Recovering/Resolving]
  - Metabolic acidosis [Recovering/Resolving]
  - Neuroleptic malignant syndrome [Recovering/Resolving]
  - Overdose [Recovering/Resolving]
  - Shock [Recovering/Resolving]
  - Rhabdomyolysis [Recovering/Resolving]
  - Mydriasis [Recovering/Resolving]
  - Acute kidney injury [Recovered/Resolved]
  - Depressed level of consciousness [Recovering/Resolving]
